FAERS Safety Report 24689521 (Version 1)
Quarter: 2024Q4

REPORT INFORMATION
  Report Type: Spontaneous
  Country: BR (occurrence: BR)
  Receive Date: 20241203
  Receipt Date: 20241203
  Transmission Date: 20250115
  Serious: Yes (Other)
  Sender: AUROBINDO
  Company Number: BR-AUROBINDO-AUR-APL-2024-045628

PATIENT
  Age: 32 Year
  Sex: Male
  Weight: 95 kg

DRUGS (7)
  1. CIPROFLOXACIN [Suspect]
     Active Substance: CIPROFLOXACIN
     Indication: Penis injury
     Dosage: 500 MILLIGRAM, TWO TIMES A DAY
     Route: 065
     Dates: start: 202007
  2. CEFTRIAXONE [Suspect]
     Active Substance: CEFTRIAXONE
     Indication: Product used for unknown indication
     Dosage: 1 GRAM, SINGLE DOSE
     Route: 030
  3. PREDNISOLONE [Suspect]
     Active Substance: PREDNISOLONE
     Indication: Penis injury
     Dosage: 15 MILLIGRAM
     Route: 065
     Dates: start: 202007
  4. PREDNISONE [Suspect]
     Active Substance: PREDNISONE
     Indication: Penis injury
     Dosage: 20 MILLIGRAM
     Route: 065
     Dates: start: 202007
  5. KETOPROFEN [Suspect]
     Active Substance: KETOPROFEN
     Indication: Penis injury
     Dosage: 150 MILLIGRAM FOR FIVE DAYS
     Route: 065
     Dates: start: 202007
  6. AZITHROMYCIN [Concomitant]
     Active Substance: AZITHROMYCIN
     Indication: Product used for unknown indication
     Dosage: 1 GRAM (SINGLE DOSE)
     Route: 065
  7. Quadriderm [Concomitant]
     Indication: Penis injury
     Dosage: 20 GRAM
     Route: 061
     Dates: start: 202007

REACTIONS (29)
  - Neuropathy peripheral [Unknown]
  - Tendon disorder [Unknown]
  - Intracranial pressure increased [Unknown]
  - Cognitive disorder [Unknown]
  - Dysphagia [Unknown]
  - Arthralgia [Unknown]
  - Fluoride increased [Recovering/Resolving]
  - Back pain [Unknown]
  - Tinnitus [Unknown]
  - Visual impairment [Unknown]
  - Dry mouth [Unknown]
  - Seborrhoea [Unknown]
  - Anxiety [Unknown]
  - Gastrooesophageal reflux disease [Unknown]
  - Ocular hyperaemia [Unknown]
  - Dry eye [Unknown]
  - Dyspnoea [Unknown]
  - Rash macular [Unknown]
  - Chest pain [Unknown]
  - Photophobia [Unknown]
  - Neck pain [Unknown]
  - Toxicity to various agents [Unknown]
  - Agitation [Unknown]
  - Dyslexia [Unknown]
  - Myalgia [Unknown]
  - Diarrhoea [Unknown]
  - Fatigue [Unknown]
  - Nausea [Unknown]
  - Condition aggravated [Unknown]

NARRATIVE: CASE EVENT DATE: 20200101
